FAERS Safety Report 9845272 (Version 2)
Quarter: 2014Q1

REPORT INFORMATION
  Report Type: Not Available
  Country: JP (occurrence: JP)
  Receive Date: 20140127
  Receipt Date: 20140206
  Transmission Date: 20141002
  Serious: Yes (Hospitalization)
  Sender: FDA-Public Use
  Company Number: JP-ASTELLAS-2014JP000517

PATIENT
  Age: 38 Year
  Sex: Female
  Weight: 55 kg

DRUGS (4)
  1. VESICARE [Suspect]
     Indication: HYPERTONIC BLADDER
     Dosage: UNK
     Route: 048
     Dates: start: 20100510, end: 20100514
  2. HERBALS [Suspect]
     Indication: OBESITY
     Dosage: 2.5 G, TID
     Route: 048
     Dates: start: 20100510, end: 20100514
  3. CETIRIZINE HYDROCHLORIDE [Concomitant]
     Indication: RHINITIS ALLERGIC
     Dosage: 5 MG, BID
     Route: 048
     Dates: start: 20071226
  4. NIPOLAZIN [Concomitant]
     Indication: RHINITIS ALLERGIC
     Dosage: UNK
     Route: 048
     Dates: start: 20071226

REACTIONS (1)
  - Drug-induced liver injury [Recovered/Resolved]
